FAERS Safety Report 18925526 (Version 1)
Quarter: 2021Q1

REPORT INFORMATION
  Report Type: Spontaneous
  Country: FR (occurrence: FR)
  Receive Date: 20210222
  Receipt Date: 20210222
  Transmission Date: 20210420
  Serious: Yes (Hospitalization)
  Sender: FDA-Public Use
  Company Number: FR-B.BRAUN MEDICAL INC.-2107141

PATIENT
  Age: 57 Year
  Sex: Female

DRUGS (18)
  1. FLUDROCORTISONE ACETATE. [Suspect]
     Active Substance: FLUDROCORTISONE ACETATE
     Dates: start: 20210112, end: 20210117
  2. INSULIN, HUMAN RECOMBINANT, ZINC SOLUTION [Concomitant]
  3. HYDROXOCOBALAMINE [Suspect]
     Active Substance: HYDROXOCOBALAMIN
     Dates: start: 20210112, end: 20210112
  4. URAPIDIL [Concomitant]
     Active Substance: URAPIDIL
  5. HEPARIN [Concomitant]
     Active Substance: HEPARIN SODIUM
  6. PANTOPRAZOLE SODIUM. [Concomitant]
     Active Substance: PANTOPRAZOLE SODIUM
  7. CEFEPIME [Suspect]
     Active Substance: CEFEPIME HYDROCHLORIDE
     Dates: start: 20210112, end: 20210118
  8. TRAMADOL. [Concomitant]
     Active Substance: TRAMADOL
  9. UMULINE [Concomitant]
     Active Substance: INSULIN HUMAN
  10. PARACETAMOL [Concomitant]
     Active Substance: ACETAMINOPHEN
  11. BIOGENETIC HUMAN INSULIN ZINC CRYSTALLIZED [Concomitant]
  12. METRONIDAZOLE INJECTION USP (5 MG/ML) IN PAB? PLASTIC CONTAINER (NDA 0 [Suspect]
     Active Substance: METRONIDAZOLE
     Indication: LUNG DISORDER
     Dates: start: 20210113, end: 20210118
  13. FUROSEMIDE. [Suspect]
     Active Substance: FUROSEMIDE
     Dates: start: 20210115, end: 20210117
  14. FLUCORTAC [Concomitant]
     Active Substance: FLUDROCORTISONE ACETATE
  15. CYNOKIT [Concomitant]
  16. BIPHASIC ISOPHANE RECOMBINANT HUMAN INSULIN [Concomitant]
  17. DEXAMETHASONE. [Concomitant]
     Active Substance: DEXAMETHASONE
  18. BIOGENETIC HUMAN INSULIN [Concomitant]

REACTIONS (3)
  - Proteinuria [None]
  - Chromaturia [None]
  - Polyuria [None]
